FAERS Safety Report 10290738 (Version 1)
Quarter: 2014Q3

REPORT INFORMATION
  Report Type: Spontaneous
  Country: AT (occurrence: AT)
  Receive Date: 20140710
  Receipt Date: 20140710
  Transmission Date: 20150326
  Serious: Yes (Other)
  Sender: FDA-Public Use
  Company Number: AT-B.I. PHARMACEUTICALS,INC./RIDGEFIELD-2014-BI-31287BE

PATIENT
  Sex: Male
  Weight: 75 kg

DRUGS (1)
  1. TRADJENTA [Suspect]
     Active Substance: LINAGLIPTIN
     Indication: TYPE 2 DIABETES MELLITUS
     Dosage: 5 MG
     Route: 048
     Dates: end: 201406

REACTIONS (1)
  - Glycosylated haemoglobin increased [Unknown]
